FAERS Safety Report 21747575 (Version 1)
Quarter: 2022Q4

REPORT INFORMATION
  Report Type: Spontaneous
  Country: US (occurrence: US)
  Receive Date: 20221219
  Receipt Date: 20221219
  Transmission Date: 20230113
  Serious: Yes (Other)
  Sender: FDA-Public Use
  Company Number: US-REGENERON PHARMACEUTICALS, INC.-2022-159813

PATIENT
  Age: 76 Year
  Sex: Female

DRUGS (1)
  1. EYLEA [Suspect]
     Active Substance: AFLIBERCEPT
     Indication: Neovascular age-related macular degeneration
     Dosage: UNK, IN BOTH EYES; FORMULATION: UNKNOWN
     Route: 031

REACTIONS (7)
  - Eye haemorrhage [Unknown]
  - Product dose omission issue [Unknown]
  - Visual impairment [Not Recovered/Not Resolved]
  - Altered visual depth perception [Not Recovered/Not Resolved]
  - Disease progression [Not Recovered/Not Resolved]
  - Visual impairment [Recovered/Resolved]
  - Vision blurred [Not Recovered/Not Resolved]
